FAERS Safety Report 14658355 (Version 1)
Quarter: 2018Q1

REPORT INFORMATION
  Report Type: Report from Study
  Country: US (occurrence: US)
  Receive Date: 20180320
  Receipt Date: 20180320
  Transmission Date: 20180509
  Serious: Yes (Other)
  Sender: FDA-Public Use
  Company Number: US-CIPLA LTD.-2018US12255

PATIENT

DRUGS (7)
  1. CETUXIMAB. [Suspect]
     Active Substance: CETUXIMAB
     Dosage: 250 MG/M2, DAYS 1, 8, 15, 22, AND 29 OF CYCLE 2
     Route: 042
  2. OXALIPLATIN. [Suspect]
     Active Substance: OXALIPLATIN
     Indication: RECTAL ADENOCARCINOMA
     Dosage: 50 MG/M2, ON DAYS 1, 8, 15, 22, AND 29 OF THE FIRST CYCLE
     Route: 042
  3. CAPECITABINE. [Suspect]
     Active Substance: CAPECITABINE
     Dosage: 825 MG/M2, BID, EVERY 12 HOURS ON DAY 1, 8, 15, 18, 22 AND 29
     Route: 048
  4. CETUXIMAB. [Suspect]
     Active Substance: CETUXIMAB
     Dosage: 250 MG/M2, ON DAYS 8, 15, 22, 29 OF CYCLE 1
     Route: 042
  5. CAPECITABINE. [Suspect]
     Active Substance: CAPECITABINE
     Indication: RECTAL ADENOCARCINOMA
     Dosage: 825 MG/M2, BID, EVERY 12 HOURS ON DAY 50, 57, 64, 71 AND 78 IN CYCLE 2
     Route: 048
  6. OXALIPLATIN. [Suspect]
     Active Substance: OXALIPLATIN
     Dosage: 50 MG/M2, DAYS 1, 8, 22, AND 29 OF THE CYCLE 2
     Route: 042
  7. CETUXIMAB. [Suspect]
     Active Substance: CETUXIMAB
     Indication: RECTAL ADENOCARCINOMA
     Dosage: 400 MG/M2, AS LOADING DOSE ON DAY 1
     Route: 042

REACTIONS (1)
  - Malignant neoplasm progression [Unknown]
